FAERS Safety Report 6710524-X (Version None)
Quarter: 2010Q2

REPORT INFORMATION
  Report Type: 
  Country: None (occurrence: None)
  Receive Date: 20100504
  Receipt Date: 20100427
  Transmission Date: 20101027
  Serious: Yes (Other)
  Sender: FDA-Public Use
  Company Number: US-BAYER-201020703NA

PATIENT
  Age: 85 Year
  Sex: Female

DRUGS (3)
  1. MAGNEVIST [Suspect]
     Indication: NUCLEAR MAGNETIC RESONANCE IMAGING
     Dosage: TOTAL DAILY DOSE: 13 ML  UNIT DOSE: 50 ML
     Route: 042
     Dates: start: 20100427, end: 20100427
  2. MAGNEVIST [Suspect]
     Indication: NUCLEAR MAGNETIC RESONANCE IMAGING
     Dosage: TOTAL DAILY DOSE: 4 ML  UNIT DOSE: 20 ML
     Route: 042
     Dates: start: 20100427, end: 20100427
  3. COMBIVENT [Concomitant]
     Route: 055

REACTIONS (3)
  - CHEST DISCOMFORT [None]
  - URTICARIA [None]
  - WHEEZING [None]
